FAERS Safety Report 8163776-6 (Version None)
Quarter: 2012Q1

REPORT INFORMATION
  Report Type: 
  Country: None (occurrence: None)
  Receive Date: 20120224
  Receipt Date: 20120217
  Transmission Date: 20120608
  Serious: Yes (Hospitalization)
  Sender: FDA-Public Use
  Company Number: PHEH2012US004081

PATIENT
  Age: 68 Year
  Sex: Female
  Weight: 71.655 kg

DRUGS (11)
  1. VALTREX [Concomitant]
     Dates: start: 20100707
  2. METHOCARBAMOL [Concomitant]
     Dates: start: 20100930
  3. OXYCONTIN [Concomitant]
     Dates: start: 20111005
  4. GABAPENTIN [Concomitant]
     Dates: start: 20111014
  5. ZOMETA [Suspect]
     Indication: MULTIPLE MYELOMA
     Dosage: 3.5 MG EVERY 4 WEEKS
     Route: 042
     Dates: start: 20110310
  6. OXYCODONE HCL [Concomitant]
     Dates: start: 20110110
  7. ZOMETA [Suspect]
     Dosage: 3.5 MG EVERY 4 WEEKS
     Route: 042
     Dates: start: 20120103
  8. LASIX [Concomitant]
     Dates: start: 20100930
  9. METFORMIN HCL [Concomitant]
  10. ZOVIRAX [Concomitant]
     Dates: start: 20110719
  11. HUMULIN R [Concomitant]
     Dates: start: 20100816

REACTIONS (1)
  - PNEUMONIA [None]
